FAERS Safety Report 9657612 (Version 2)
Quarter: 2013Q4

REPORT INFORMATION
  Report Type: Spontaneous
  Country: US (occurrence: US)
  Receive Date: 20131030
  Receipt Date: 20131030
  Transmission Date: 20140711
  Serious: Yes (Other)
  Sender: FDA-Public Use
  Company Number: US-NAPPMUNDI-USA-2008-0033300

PATIENT
  Sex: Male

DRUGS (4)
  1. OXYCONTIN TABLETS [Suspect]
     Indication: PAIN
     Dates: start: 1997
  2. PERCOCET                           /00867901/ [Concomitant]
     Indication: BREAKTHROUGH PAIN
     Dosage: UNK, SEE TEXT
  3. OXYIR [Concomitant]
     Indication: BREAKTHROUGH PAIN
  4. DURAGESIC                          /00070401/ [Concomitant]
     Indication: PAIN

REACTIONS (10)
  - Drug dependence [Unknown]
  - Drug withdrawal syndrome [Unknown]
  - Paranoia [Unknown]
  - Delusional disorder, unspecified type [Unknown]
  - Obsessive-compulsive disorder [Unknown]
  - Anhedonia [Unknown]
  - Pain [Unknown]
  - Anxiety [Unknown]
  - Depression [Unknown]
  - Drug tolerance increased [Unknown]
